FAERS Safety Report 23125137 (Version 2)
Quarter: 2023Q4

REPORT INFORMATION
  Report Type: Spontaneous
  Country: US (occurrence: US)
  Receive Date: 20231030
  Receipt Date: 20231215
  Transmission Date: 20240110
  Serious: No
  Sender: FDA-Public Use
  Company Number: US-GSK-US2023145924

PATIENT
  Age: 82 Year
  Sex: Female

DRUGS (3)
  1. TRELEGY ELLIPTA [Suspect]
     Active Substance: FLUTICASONE FUROATE\UMECLIDINIUM BROMIDE\VILANTEROL TRIFENATATE
     Indication: Chronic obstructive pulmonary disease
     Dosage: UNK (100/62.5/25MCG INH 30)
     Route: 055
     Dates: start: 20220501
  2. TRELEGY ELLIPTA [Suspect]
     Active Substance: FLUTICASONE FUROATE\UMECLIDINIUM BROMIDE\VILANTEROL TRIFENATATE
     Indication: Dyspnoea
     Dosage: 1 PUFF(S), QD, 100/62.5/25MCG
     Route: 048
     Dates: start: 202307
  3. VENTOLIN HFA [Concomitant]
     Active Substance: ALBUTEROL SULFATE
     Indication: Dyspnoea
     Dosage: UNK

REACTIONS (2)
  - Dyspnoea [Unknown]
  - Product use issue [Unknown]

NARRATIVE: CASE EVENT DATE: 20230901
